FAERS Safety Report 19521755 (Version 3)
Quarter: 2021Q4

REPORT INFORMATION
  Report Type: Spontaneous
  Country: DE (occurrence: DE)
  Receive Date: 20210712
  Receipt Date: 20211215
  Transmission Date: 20220303
  Serious: Yes (Hospitalization, Other)
  Sender: FDA-Public Use
  Company Number: None

PATIENT
  Age: 34 Year
  Sex: Female

DRUGS (28)
  1. PANTOPRAZOLE [Interacting]
     Active Substance: PANTOPRAZOLE
     Dosage: UNK
     Route: 065
  2. ELEXACAFTOR\IVACAFTOR\TEZACAFTOR [Interacting]
     Active Substance: ELEXACAFTOR\IVACAFTOR\TEZACAFTOR
     Indication: Cystic fibrosis
     Dosage: UNK
     Route: 048
  3. ELEXACAFTOR\IVACAFTOR\TEZACAFTOR [Interacting]
     Active Substance: ELEXACAFTOR\IVACAFTOR\TEZACAFTOR
     Dosage: UNK UNK, QD
     Route: 048
     Dates: start: 20200929
  4. ELEXACAFTOR\IVACAFTOR\TEZACAFTOR [Interacting]
     Active Substance: ELEXACAFTOR\IVACAFTOR\TEZACAFTOR
     Dosage: UNK UNK, Q12H
     Route: 048
     Dates: start: 202012, end: 202012
  5. ELEXACAFTOR\IVACAFTOR\TEZACAFTOR [Interacting]
     Active Substance: ELEXACAFTOR\IVACAFTOR\TEZACAFTOR
     Dosage: UNK UNK, TID
     Route: 048
     Dates: start: 20201210, end: 202012
  6. ELEXACAFTOR\IVACAFTOR\TEZACAFTOR [Interacting]
     Active Substance: ELEXACAFTOR\IVACAFTOR\TEZACAFTOR
     Dosage: UNK UNK, QD
     Route: 048
     Dates: start: 202012
  7. KALYDECO [Interacting]
     Active Substance: IVACAFTOR
     Indication: Cystic fibrosis
     Dosage: 150 MILLIGRAM,2X/DAY (Q12H)
     Route: 048
  8. KALYDECO [Interacting]
     Active Substance: IVACAFTOR
     Dosage: UNK
     Route: 048
  9. KALYDECO [Interacting]
     Active Substance: IVACAFTOR
     Dosage: UNK UNK, QD
     Route: 048
     Dates: start: 20200929
  10. KALYDECO [Interacting]
     Active Substance: IVACAFTOR
     Dosage: 150 MILLIGRAM, QD
     Route: 048
     Dates: start: 202012
  11. KALYDECO [Interacting]
     Active Substance: IVACAFTOR
     Dosage: 150 MILLIGRAM, 3X/DAY (Q8HR)
     Route: 048
     Dates: start: 20201210, end: 202012
  12. SULFAMETHOXAZOLE\TRIMETHOPRIM [Interacting]
     Active Substance: SULFAMETHOXAZOLE\TRIMETHOPRIM
     Indication: Cystic fibrosis
     Dosage: UNK, DAILY
     Route: 065
  13. SULFAMETHOXAZOLE\TRIMETHOPRIM [Interacting]
     Active Substance: SULFAMETHOXAZOLE\TRIMETHOPRIM
     Indication: C-reactive protein increased
     Dosage: UNK
     Route: 048
     Dates: start: 20201007, end: 20201011
  14. BOSWELLIA SACRA [Concomitant]
     Dosage: UNK
     Dates: start: 201902
  15. CREON [Concomitant]
     Active Substance: PANCRELIPASE AMYLASE\PANCRELIPASE LIPASE\PANCRELIPASE PROTEASE
     Dosage: UNK
  16. ACETYLCYSTEINE [Concomitant]
     Active Substance: ACETYLCYSTEINE
     Dosage: UNK
  17. SODIUM CHLORIDE [Concomitant]
     Active Substance: SODIUM CHLORIDE
     Dosage: UNK
  18. URSODIOL [Concomitant]
     Active Substance: URSODIOL
     Dosage: UNK
  19. FERROUS GLYCINE SULFATE [Concomitant]
     Active Substance: FERROUS GLYCINE SULFATE
     Dosage: UNK
  20. ONDANSETRON [Concomitant]
     Active Substance: ONDANSETRON
     Dosage: UNK
  21. FLUTICASONE PROPIONATE [Concomitant]
     Active Substance: FLUTICASONE PROPIONATE
     Dosage: UNK
  22. FENOTEROL HYDROBROMIDE\IPRATROPIUM BROMIDE [Concomitant]
     Active Substance: FENOTEROL HYDROBROMIDE\IPRATROPIUM BROMIDE
     Dosage: UNK
  23. TRIMETHOPRIM [Concomitant]
     Active Substance: TRIMETHOPRIM
     Dosage: UNK
     Route: 048
     Dates: start: 20201007, end: 202010
  24. NOVORAPID [Concomitant]
     Active Substance: INSULIN ASPART
     Dosage: UNK
  25. FLUTICASONE PROPIONATE\SALMETEROL XINAFOATE [Concomitant]
     Active Substance: FLUTICASONE PROPIONATE\SALMETEROL XINAFOATE
     Dosage: UNK
  26. INSULIN NOS [Concomitant]
     Active Substance: INSULIN NOS
     Dosage: UNK
  27. URSODIOL [Concomitant]
     Active Substance: URSODIOL
  28. OXYGEN [Concomitant]
     Active Substance: OXYGEN

REACTIONS (12)
  - Condition aggravated [Unknown]
  - Abscess rupture [Unknown]
  - Blood glucose decreased [Recovering/Resolving]
  - Drug interaction [Unknown]
  - Frequent bowel movements [Recovering/Resolving]
  - Sputum increased [Recovered/Resolved]
  - Respiratory tract haemorrhage [Recovered/Resolved]
  - Bronchial secretion retention [Recovered/Resolved]
  - Oxygen saturation decreased [Recovered/Resolved]
  - Secretion discharge [Recovered/Resolved]
  - Heart rate increased [Recovered/Resolved]
  - Accidental overdose [Unknown]

NARRATIVE: CASE EVENT DATE: 20201001
